FAERS Safety Report 23356998 (Version 4)
Quarter: 2024Q3

REPORT INFORMATION
  Report Type: Spontaneous
  Country: BE (occurrence: BE)
  Receive Date: 20240102
  Receipt Date: 20240708
  Transmission Date: 20241017
  Serious: No
  Sender: NOVARTIS
  Company Number: BE-002147023-NVSC2023BE250630

PATIENT
  Age: 66 Year
  Sex: Female

DRUGS (3)
  1. ADALIMUMAB [Suspect]
     Active Substance: ADALIMUMAB\ISOPROPYL ALCOHOL
     Indication: Granuloma annulare
     Dosage: 40 MILLIGRAM, Q2WK
     Route: 065
  2. CYCLOSPORINE [Suspect]
     Active Substance: CYCLOSPORINE
     Indication: Granuloma annulare
     Dosage: 3 MG, QD
     Route: 065
  3. METHOTREXATE [Suspect]
     Active Substance: METHOTREXATE
     Indication: Granuloma annulare
     Dosage: 15 MILLIGRAM, QWK
     Route: 065

REACTIONS (3)
  - Product use in unapproved indication [Unknown]
  - Therapeutic response shortened [Unknown]
  - Therapeutic product effect incomplete [Unknown]
